FAERS Safety Report 8187728-5 (Version None)
Quarter: 2012Q1

REPORT INFORMATION
  Report Type: 
  Country: None (occurrence: None)
  Receive Date: 20120306
  Receipt Date: 20120302
  Transmission Date: 20120608
  Serious: Yes (Life-Threatening, Hospitalization, Other)
  Sender: FDA-Public Use
  Company Number: US-BAYER-2012-021447

PATIENT
  Age: 19 Year
  Sex: Female

DRUGS (2)
  1. LEVONORGESTREL [Suspect]
  2. MIRENA [Suspect]
     Indication: CONTRACEPTION
     Dosage: 20 MCG/24HR, CONT
     Route: 015
     Dates: start: 20110224, end: 20111216

REACTIONS (17)
  - DYSGEUSIA [None]
  - PHAEOCHROMOCYTOMA [None]
  - TINNITUS [None]
  - EAR DISCOMFORT [None]
  - CHEST DISCOMFORT [None]
  - HEADACHE [None]
  - LOSS OF CONSCIOUSNESS [None]
  - NAUSEA [None]
  - DEAFNESS [None]
  - FEELING HOT [None]
  - PARAESTHESIA [None]
  - TONGUE DISORDER [None]
  - FEELING ABNORMAL [None]
  - THROAT TIGHTNESS [None]
  - HYPOTENSION [None]
  - EAR DISORDER [None]
  - ANAPHYLACTIC REACTION [None]
